FAERS Safety Report 7826099-8 (Version None)
Quarter: 2011Q4

REPORT INFORMATION
  Report Type: 
  Country: None (occurrence: None)
  Receive Date: 20111019
  Receipt Date: 20111012
  Transmission Date: 20120403
  Serious: Yes (Death, Other)
  Sender: FDA-Public Use
  Company Number: BG-CELGENEUS-022-21880-11081838

PATIENT
  Sex: Male
  Weight: 70 kg

DRUGS (14)
  1. REVLIMID [Suspect]
     Indication: MULTIPLE MYELOMA
     Dosage: 25 MILLIGRAM
     Route: 048
     Dates: start: 20110202, end: 20110704
  2. PREDUCTAL MR [Concomitant]
     Dosage: 70 MILLIGRAM
     Route: 048
     Dates: start: 19960401
  3. LANSOPRAZOLE [Concomitant]
     Dosage: 15 MILLIGRAM
     Route: 048
     Dates: start: 20110201
  4. AMARYL [Concomitant]
     Dosage: 1 MILLIGRAM
     Route: 048
     Dates: start: 20070601
  5. CIPROFLOXACIN [Concomitant]
     Indication: ANTIBIOTIC PROPHYLAXIS
     Dosage: 500 MILLIGRAM
     Route: 048
     Dates: start: 20110201
  6. ACYCLOVIR [Concomitant]
     Indication: ANTIVIRAL PROPHYLAXIS
     Dosage: 800 MILLIGRAM
     Route: 048
     Dates: start: 20110201
  7. ASPIRIN [Concomitant]
     Indication: THROMBOSIS PROPHYLAXIS
     Dosage: 100 MILLIGRAM
     Route: 048
     Dates: start: 19960401
  8. ASPIRIN [Concomitant]
     Indication: THROMBOSIS PROPHYLAXIS
     Dosage: 100 MILLIGRAM
     Route: 048
     Dates: start: 19960401
  9. ASPIRIN [Concomitant]
     Indication: ANTICOAGULANT THERAPY
     Dosage: 100 MILLIGRAM
     Route: 048
     Dates: start: 20110201
  10. CORONAL [Concomitant]
     Dosage: 5 MILLIGRAM
     Route: 048
     Dates: start: 19960401
  11. ISODINIT [Concomitant]
     Dosage: 40 MILLIGRAM
     Route: 048
     Dates: start: 19960401
  12. ZOMETA [Concomitant]
     Route: 041
     Dates: start: 20110201
  13. DEXAMETHASONE [Suspect]
     Indication: MULTIPLE MYELOMA
     Dosage: DAYS 1, 8, 15, 22
     Route: 065
     Dates: start: 20110201, end: 20110802
  14. FURANTHRIL [Concomitant]
     Dosage: 20 MILLIGRAM
     Route: 048
     Dates: start: 20110705

REACTIONS (2)
  - MULTIPLE MYELOMA [None]
  - RENAL IMPAIRMENT [None]
